FAERS Safety Report 4744152-2 (Version None)
Quarter: 2005Q3

REPORT INFORMATION
  Report Type: 
  Country: None (occurrence: None)
  Receive Date: 20050812
  Receipt Date: 20050804
  Transmission Date: 20060218
  Serious: Yes (Other)
  Sender: FDA-Public Use
  Company Number: BR-JNJFOC-20050801973

PATIENT
  Age: 42 Year
  Sex: Female

DRUGS (2)
  1. TOPAMAX [Suspect]
     Indication: AFFECTIVE DISORDER
  2. CLONAZEPAM [Concomitant]
     Indication: AFFECTIVE DISORDER

REACTIONS (2)
  - ASTHENIA [None]
  - TACHYCARDIA [None]
